FAERS Safety Report 6302949-1 (Version None)
Quarter: 2009Q3

REPORT INFORMATION
  Report Type: 
  Country: None (occurrence: None)
  Receive Date: 20090810
  Receipt Date: 20090731
  Transmission Date: 20100115
  Serious: Yes (Life-Threatening, Other)
  Sender: FDA-Public Use
  Company Number: B0582989A

PATIENT
  Age: 85 Year
  Sex: Female

DRUGS (10)
  1. VALTREX [Suspect]
     Indication: HERPES ZOSTER
     Dosage: 1000MG THREE TIMES PER DAY
     Route: 048
     Dates: start: 20090307, end: 20090312
  2. LOXONIN [Concomitant]
     Indication: ANALGESIA
     Dosage: 180MG PER DAY
     Route: 065
  3. MUCOSTA [Concomitant]
     Dosage: 300MG PER DAY
     Route: 048
  4. MECOBALAMIN [Concomitant]
     Route: 048
  5. CARBIDOPA AND LEVODOPA [Concomitant]
     Route: 048
  6. GEFANIL [Concomitant]
     Route: 048
  7. FLUVOXAMINE MALEATE [Concomitant]
     Route: 048
  8. UNKNOWN DRUG [Concomitant]
  9. TETRAMIDE [Concomitant]
     Route: 048
  10. SYMMETREL [Concomitant]
     Route: 048

REACTIONS (4)
  - DEPRESSED LEVEL OF CONSCIOUSNESS [None]
  - RENAL FAILURE ACUTE [None]
  - TONIC CONVULSION [None]
  - TOXIC ENCEPHALOPATHY [None]
